FAERS Safety Report 6095345-6 (Version None)
Quarter: 2009Q1

REPORT INFORMATION
  Report Type: 
  Country: None (occurrence: None)
  Receive Date: 20090227
  Receipt Date: 20080305
  Transmission Date: 20090719
  Serious: No
  Sender: FDA-Public Use
  Company Number: A0714743A

PATIENT
  Age: 8 Year
  Sex: Female

DRUGS (5)
  1. LAMICTAL [Suspect]
  2. ZONISAMIDE [Suspect]
  3. DILANTIN [Suspect]
  4. KEPPRA [Suspect]
  5. CLORAZEPATE DIPOTASSIUM [Suspect]
     Indication: DRUG USE FOR UNKNOWN INDICATION

REACTIONS (1)
  - AMINO ACID LEVEL INCREASED [None]
